FAERS Safety Report 18091085 (Version 1)
Quarter: 2020Q3

REPORT INFORMATION
  Report Type: Spontaneous
  Country: US (occurrence: US)
  Receive Date: 20200729
  Receipt Date: 20200729
  Transmission Date: 20201103
  Serious: Yes (Disabling)
  Sender: FDA-Public Use
  Company Number: None

PATIENT
  Age: 23 Year
  Sex: Male
  Weight: 65.25 kg

DRUGS (1)
  1. O.P.M.S. LIQUID KRATOM [Suspect]
     Active Substance: HERBALS\MITRAGYNINE
     Indication: ANALGESIC THERAPY

REACTIONS (7)
  - Dependence [None]
  - Myalgia [None]
  - Decreased appetite [None]
  - Mood swings [None]
  - Sleep disorder [None]
  - Vomiting [None]
  - Cognitive disorder [None]

NARRATIVE: CASE EVENT DATE: 20200729
